FAERS Safety Report 25830786 (Version 1)
Quarter: 2025Q3

REPORT INFORMATION
  Report Type: Spontaneous
  Country: EU (occurrence: EU)
  Receive Date: 20250922
  Receipt Date: 20250922
  Transmission Date: 20251021
  Serious: Yes (Life-Threatening, Hospitalization, Other)
  Sender: MYLAN
  Company Number: EU-AstraZeneca-2024A025370

PATIENT
  Age: 27 Year
  Sex: Female

DRUGS (6)
  1. PROPRANOLOL [Suspect]
     Active Substance: PROPRANOLOL HYDROCHLORIDE
     Indication: Product used for unknown indication
     Dosage: UNK UNK, QD, FREQUENCY TIME : 1 FREQUENCY TIME UNIT: DAYS
  2. LABETALOL [Suspect]
     Active Substance: LABETALOL
     Indication: Product used for unknown indication
  3. LABETALOL [Suspect]
     Active Substance: LABETALOL
  4. CARBIMAZOLE [Suspect]
     Active Substance: CARBIMAZOLE
     Indication: Graves^ disease
     Dosage: 30 MILLIGRAM, TID (TDS)
  5. IODINE\POTASSIUM IODIDE [Suspect]
     Active Substance: IODINE\POTASSIUM IODIDE
     Indication: Product used for unknown indication
  6. IODINE\POTASSIUM IODIDE [Suspect]
     Active Substance: IODINE\POTASSIUM IODIDE

REACTIONS (5)
  - Neonatal thyrotoxicosis [Recovered/Resolved]
  - Foetal exposure during pregnancy [Unknown]
  - Premature baby [Unknown]
  - Premature delivery [Unknown]
  - Maternal exposure during pregnancy [Unknown]
